FAERS Safety Report 8608509-1 (Version None)
Quarter: 2012Q3

REPORT INFORMATION
  Report Type: 
  Country: None (occurrence: None)
  Receive Date: 20120821
  Receipt Date: 20080618
  Transmission Date: 20120928
  Serious: Yes (Death, Other)
  Sender: FDA-Public Use
  Company Number: CO-PFIZER INC-2012200174

PATIENT
  Age: 57 Year
  Sex: Female

DRUGS (5)
  1. INSULIN ZINC SUSPENSION [Concomitant]
     Dosage: 1 DF, 1X/DAY
  2. LIPITOR [Suspect]
     Indication: DYSLIPIDAEMIA
     Dosage: 10 MG, 1X/DAY
  3. NORVASC [Suspect]
     Indication: HYPERTENSION
     Dosage: 10 MG, 2X/DAY
  4. LOSARTAN [Concomitant]
     Dosage: 50 MG, 2X/DAY
  5. FUROSEMIDE [Concomitant]
     Dosage: 40 MG, 1X/DAY

REACTIONS (5)
  - TOBACCO ABUSE [None]
  - HAEMATURIA [None]
  - PROTEINURIA [None]
  - DEATH [None]
  - RENAL FAILURE CHRONIC [None]
